FAERS Safety Report 11250482 (Version 1)
Quarter: 2015Q3

REPORT INFORMATION
  Report Type: Spontaneous
  Country: US (occurrence: US)
  Receive Date: 20150708
  Receipt Date: 20150708
  Transmission Date: 20151125
  Serious: No
  Sender: FDA-Public Use
  Company Number: US-ELI_LILLY_AND_COMPANY-US201010005642

PATIENT
  Age: 90 Year
  Sex: Female

DRUGS (11)
  1. ZOFRAN [Concomitant]
     Active Substance: ONDANSETRON HYDROCHLORIDE
  2. COMPRO [Concomitant]
     Active Substance: PROCHLORPERAZINE
  3. MORPHINE [Concomitant]
     Active Substance: MORPHINE
  4. CISPLATIN. [Concomitant]
     Active Substance: CISPLATIN
     Dosage: 114.75 MG, EVERY 21 DAYS
  5. FOLIC ACID W/VITAMIN B12 [Concomitant]
  6. NORCO [Concomitant]
     Active Substance: ACETAMINOPHEN\HYDROCODONE BITARTRATE
  7. ALIMTA [Suspect]
     Active Substance: PEMETREXED DISODIUM
     Dosage: UNK, OTHER, EVERY THREE WEEKS
     Dates: start: 20120202
  8. EMEND [Concomitant]
     Active Substance: APREPITANT
  9. AVASTIN [Concomitant]
     Active Substance: BEVACIZUMAB
  10. COMPAZINE [Concomitant]
     Active Substance: PROCHLORPERAZINE MALEATE
  11. ALIMTA [Suspect]
     Active Substance: PEMETREXED DISODIUM
     Indication: LUNG CARCINOMA CELL TYPE UNSPECIFIED STAGE IV
     Dosage: 765 MG, EVERY 21 DAYS
     Dates: start: 20101018

REACTIONS (6)
  - Decreased appetite [Unknown]
  - Nausea [Unknown]
  - Fatigue [Unknown]
  - Dysgeusia [Unknown]
  - Bone pain [Unknown]
  - Weight decreased [Unknown]
